FAERS Safety Report 9297056 (Version 1)
Quarter: 2013Q2

REPORT INFORMATION
  Report Type: Spontaneous
  Country: US (occurrence: US)
  Receive Date: 20130519
  Receipt Date: 20130519
  Transmission Date: 20140414
  Serious: No
  Sender: FDA-Public Use
  Company Number: US-ALLERGAN-1303499US

PATIENT
  Sex: Female

DRUGS (1)
  1. LASTACAFT [Suspect]
     Indication: PRODUCT USED FOR UNKNOWN INDICATION
     Dosage: 2 GTT, QD
     Route: 047
     Dates: start: 20130307

REACTIONS (3)
  - Eye swelling [Unknown]
  - Eye pruritus [Unknown]
  - Eye irritation [Unknown]
